FAERS Safety Report 4592306-0 (Version None)
Quarter: 2005Q1

REPORT INFORMATION
  Report Type: 
  Country: None (occurrence: None)
  Receive Date: 20050228
  Receipt Date: 20041130
  Transmission Date: 20050727
  Serious: Yes (Other)
  Sender: FDA-Public Use
  Company Number: US-BRISTOL-MYERS SQUIBB COMPANY-12779351

PATIENT
  Age: 45 Year
  Sex: Male
  Weight: 112 kg

DRUGS (16)
  1. ABILIFY [Suspect]
     Indication: BIPOLAR DISORDER
     Route: 048
     Dates: start: 20041101
  2. ABILIFY [Suspect]
     Indication: SCHIZOPHRENIA
     Route: 048
     Dates: start: 20041101
  3. ZYPREXA [Concomitant]
  4. SEROQUEL [Concomitant]
  5. DIAZEPAM [Concomitant]
  6. TRAZODONE HCL [Concomitant]
  7. BACLOFEN [Concomitant]
  8. TRICOR [Concomitant]
  9. LIPITOR [Concomitant]
  10. AVANDAMET [Concomitant]
  11. GLUCOPHAGE XR [Concomitant]
  12. HYDROCHLOROTHIAZIDE [Concomitant]
  13. NAPROXEN [Concomitant]
  14. ADVAIR DISKUS 100/50 [Concomitant]
  15. SINGULAIR [Concomitant]
  16. GLUCOTROL [Concomitant]

REACTIONS (3)
  - ANGER [None]
  - HALLUCINATION, AUDITORY [None]
  - WEIGHT DECREASED [None]
